FAERS Safety Report 14940290 (Version 1)
Quarter: 2018Q2

REPORT INFORMATION
  Report Type: Report from Study
  Country: CA (occurrence: CA)
  Receive Date: 20180525
  Receipt Date: 20180525
  Transmission Date: 20180711
  Serious: No
  Sender: FDA-Public Use
  Company Number: CA-SA-2017SA083835

PATIENT
  Age: 37 Year
  Sex: Female

DRUGS (9)
  1. METHYLPREDNISOLONE. [Suspect]
     Active Substance: METHYLPREDNISOLONE
     Indication: PREMEDICATION
     Dosage: 1 G,UNK
     Route: 042
     Dates: start: 20170501, end: 20170505
  2. CIMETIDINE [Concomitant]
     Active Substance: CIMETIDINE
     Indication: PREMEDICATION
     Dosage: 200 MG,BID
     Route: 048
     Dates: start: 20170501, end: 20170505
  3. PARACETAMOL [Concomitant]
     Active Substance: ACETAMINOPHEN
     Indication: PREMEDICATION
     Dosage: UNK UNK,PRN
     Route: 048
     Dates: start: 20170501
  4. GRAVOL [Concomitant]
     Active Substance: DIMENHYDRINATE
     Indication: PREMEDICATION
     Dosage: 50 MG,PRN
     Route: 048
     Dates: start: 20170501
  5. ZOLOFT [Concomitant]
     Active Substance: SERTRALINE HYDROCHLORIDE
     Dosage: UNK UNK,QD
     Route: 048
  6. ALEMTUZUMAB [Suspect]
     Active Substance: ALEMTUZUMAB
     Indication: RELAPSING-REMITTING MULTIPLE SCLEROSIS
     Dosage: 12 MG,UNK
     Route: 041
     Dates: start: 20170501, end: 20170505
  7. BENADRYL [Concomitant]
     Active Substance: DIPHENHYDRAMINE HYDROCHLORIDE
     Indication: PREMEDICATION
     Dosage: 50 MG,PRN
     Route: 048
     Dates: start: 20170501
  8. ACICLOVIR [Concomitant]
     Active Substance: ACYCLOVIR
     Indication: PREMEDICATION
     Dosage: 200 MG,BID
     Route: 048
     Dates: start: 20170501
  9. ERGOCALCIFEROL. [Concomitant]
     Active Substance: ERGOCALCIFEROL
     Indication: SUPPLEMENTATION THERAPY
     Dosage: UNK UNK,QD
     Route: 048

REACTIONS (23)
  - Myalgia [Recovered/Resolved]
  - Generalised erythema [Recovered/Resolved]
  - Back pain [Recovered/Resolved]
  - Cough [Recovering/Resolving]
  - Urine abnormality [Recovered/Resolved]
  - Erythema [Recovered/Resolved]
  - Menstruation irregular [Not Recovered/Not Resolved]
  - Bronchitis [Recovering/Resolving]
  - Nasopharyngitis [Not Recovered/Not Resolved]
  - White blood cell count decreased [Recovered/Resolved]
  - Blood urine present [Not Recovered/Not Resolved]
  - Menorrhagia [Not Recovered/Not Resolved]
  - Urticaria [Recovered/Resolved]
  - Urine leukocyte esterase positive [Unknown]
  - Hypertension [Recovered/Resolved]
  - Pain [Recovered/Resolved]
  - Insomnia [Recovered/Resolved]
  - Headache [Recovered/Resolved]
  - Lymphocyte count decreased [Not Recovered/Not Resolved]
  - Road traffic accident [Recovered/Resolved]
  - Abdominal pain [Not Recovered/Not Resolved]
  - Hypoaesthesia [Recovering/Resolving]
  - Muscle tightness [Recovering/Resolving]

NARRATIVE: CASE EVENT DATE: 2017
